FAERS Safety Report 8045831-4 (Version None)
Quarter: 2012Q1

REPORT INFORMATION
  Report Type: 
  Country: None (occurrence: None)
  Receive Date: 20120113
  Receipt Date: 20120106
  Transmission Date: 20120608
  Serious: Yes (Hospitalization)
  Sender: FDA-Public Use
  Company Number: US-JNJFOC-20110202036

PATIENT
  Sex: Male
  Weight: 77.2 kg

DRUGS (15)
  1. CIMZIA [Concomitant]
     Dates: start: 20091106
  2. REMICADE [Suspect]
     Indication: INFLAMMATORY BOWEL DISEASE
     Route: 042
     Dates: start: 20081201, end: 20090130
  3. HYDROCORTISONE [Concomitant]
  4. OSCAL VITAMIN D [Concomitant]
  5. CIMZIA [Concomitant]
     Indication: INFLAMMATORY BOWEL DISEASE
     Dates: start: 20100826
  6. PEPCID [Concomitant]
  7. IRON SUPPLEMENT [Concomitant]
  8. IMURAN [Concomitant]
  9. DILAUDID [Concomitant]
  10. MULTI-VITAMINS [Concomitant]
  11. ANTIBIOTICS [Concomitant]
     Indication: INFLAMMATORY BOWEL DISEASE
  12. MESALAMINE [Concomitant]
  13. PREDNISONE [Concomitant]
  14. VICODIN [Concomitant]
     Dosage: 5/500 MG
  15. LIALDA [Concomitant]
     Route: 048

REACTIONS (1)
  - INFLAMMATORY BOWEL DISEASE [None]
